FAERS Safety Report 17413655 (Version 1)
Quarter: 2020Q1

REPORT INFORMATION
  Report Type: Spontaneous
  Country: US (occurrence: US)
  Receive Date: 20200213
  Receipt Date: 20200213
  Transmission Date: 20200409
  Serious: Yes (Other)
  Sender: FDA-Public Use
  Company Number: None

PATIENT
  Age: 51 Year
  Sex: Female
  Weight: 74.25 kg

DRUGS (1)
  1. FLONASE [Suspect]
     Active Substance: FLUTICASONE PROPIONATE

REACTIONS (5)
  - Confusional state [None]
  - Anxiety [None]
  - Speech disorder [None]
  - Insomnia [None]
  - Tachyphrenia [None]

NARRATIVE: CASE EVENT DATE: 20190814
